FAERS Safety Report 17162713 (Version 1)
Quarter: 2019Q4

REPORT INFORMATION
  Report Type: Spontaneous
  Country: US (occurrence: US)
  Receive Date: 20191216
  Receipt Date: 20191216
  Transmission Date: 20200122
  Serious: Yes (Hospitalization)
  Sender: FDA-Public Use
  Company Number: None

PATIENT
  Age: 73 Year
  Sex: Male
  Weight: 76.6 kg

DRUGS (22)
  1. ALBUTEROL. [Concomitant]
     Active Substance: ALBUTEROL
  2. BREO ELLIPTA [Concomitant]
     Active Substance: FLUTICASONE FUROATE\VILANTEROL TRIFENATATE
  3. METAMUCIL [Concomitant]
     Active Substance: PLANTAGO SEED
  4. METOPROLOL. [Concomitant]
     Active Substance: METOPROLOL
  5. DOXY [Concomitant]
     Active Substance: DOXYCYCLINE
  6. FLORASTOR [Concomitant]
     Active Substance: SACCHAROMYCES CEREVISIAE
  7. NITROGLYCERIN. [Concomitant]
     Active Substance: NITROGLYCERIN
  8. ABIRATERONE. [Suspect]
     Active Substance: ABIRATERONE ACETATE
     Indication: PROSTATE CANCER
     Route: 048
     Dates: start: 20181220
  9. ANORO ELLIPTA [Concomitant]
     Active Substance: UMECLIDINIUM BROMIDE\VILANTEROL TRIFENATATE
  10. FLUTICASONE. [Concomitant]
     Active Substance: FLUTICASONE
  11. DUONEB [Concomitant]
     Active Substance: ALBUTEROL SULFATE\IPRATROPIUM BROMIDE
  12. NAPROXEN. [Concomitant]
     Active Substance: NAPROXEN
  13. DICLOFENAC [Concomitant]
     Active Substance: DICLOFENAC
  14. LUPRON [Concomitant]
     Active Substance: LEUPROLIDE ACETATE
  15. ZETIA [Concomitant]
     Active Substance: EZETIMIBE
  16. CLOTRIMAZOLE AND BETAMETHASONE DIPROPIONATE [Concomitant]
     Active Substance: BETAMETHASONE\BETAMETHASONE DIPROPIONATE\CLOTRIMAZOLE
  17. COMBIVENT [Concomitant]
     Active Substance: ALBUTEROL SULFATE\IPRATROPIUM BROMIDE
  18. ESOMEPRAZOLE. [Concomitant]
     Active Substance: ESOMEPRAZOLE MAGNESIUM
  19. VENTOLIN [Concomitant]
     Active Substance: ALBUTEROL SULFATE
  20. LOTRISONE [Concomitant]
     Active Substance: BETAMETHASONE DIPROPIONATE\CLOTRIMAZOLE
  21. LISINOPRIL. [Concomitant]
     Active Substance: LISINOPRIL
  22. ZANTAC [Concomitant]
     Active Substance: RANITIDINE HYDROCHLORIDE

REACTIONS (1)
  - Pulmonary mass [None]

NARRATIVE: CASE EVENT DATE: 20191116
